FAERS Safety Report 8077717-3 (Version None)
Quarter: 2012Q1

REPORT INFORMATION
  Report Type: 
  Country: None (occurrence: None)
  Receive Date: 20120127
  Receipt Date: 20120123
  Transmission Date: 20120608
  Serious: Yes (Other)
  Sender: FDA-Public Use
  Company Number: FR-PFIZER INC-2012018025

PATIENT
  Age: 76 Year
  Sex: Male

DRUGS (7)
  1. IRINOTECAN HCL [Suspect]
     Indication: COLON CANCER
     Dosage: 360 MG
     Route: 041
     Dates: start: 20111101, end: 20120101
  2. ATROPINE SULFATE [Suspect]
     Indication: PREMEDICATION
     Dosage: 1 DF, 1X/DAY
     Route: 058
     Dates: start: 20111101, end: 20120101
  3. ZOFRAN [Suspect]
     Indication: PREMEDICATION
     Dosage: 1 DF, 1X/DAY
     Route: 042
     Dates: start: 20111101, end: 20120101
  4. FLUOROURACIL [Suspect]
     Indication: COLON CANCER
     Dosage: 800 MG
     Route: 042
     Dates: start: 20111101, end: 20120101
  5. FLUOROURACIL [Suspect]
     Dosage: 4800 MG
     Route: 041
     Dates: start: 20111101, end: 20120101
  6. LEVOLEUCOVORIN CALCIUM [Suspect]
     Indication: COLON CANCER
     Dosage: 400 MG
     Route: 041
     Dates: start: 20111101, end: 20120101
  7. METHYLPREDNISOLONE [Suspect]
     Indication: PREMEDICATION
     Dosage: 60 MG
     Route: 042
     Dates: start: 20111101, end: 20120101

REACTIONS (1)
  - URTICARIA [None]
